FAERS Safety Report 7905511-X (Version None)
Quarter: 2011Q4

REPORT INFORMATION
  Report Type: 
  Country: None (occurrence: None)
  Receive Date: 20111110
  Receipt Date: 20111102
  Transmission Date: 20120403
  Serious: No
  Sender: FDA-Public Use
  Company Number: US-BIOGENIDEC-2011BI021655

PATIENT
  Sex: Female

DRUGS (4)
  1. TYSABRI [Suspect]
     Indication: MULTIPLE SCLEROSIS
     Route: 042
  2. AVONEX [Concomitant]
     Indication: MULTIPLE SCLEROSIS
     Route: 030
     Dates: start: 19970401
  3. AVONEX [Concomitant]
     Route: 030
  4. TYSABRI [Suspect]
     Route: 042
     Dates: start: 20090505

REACTIONS (9)
  - HEMIPARESIS [None]
  - ALTERED VISUAL DEPTH PERCEPTION [None]
  - FALL [None]
  - NASOPHARYNGITIS [None]
  - FATIGUE [None]
  - MEMORY IMPAIRMENT [None]
  - BALANCE DISORDER [None]
  - DEPRESSION [None]
  - MUSCULOSKELETAL STIFFNESS [None]
